FAERS Safety Report 8746251 (Version 3)
Quarter: 2015Q4

REPORT INFORMATION
  Report Type: Report from Study
  Country: US (occurrence: US)
  Receive Date: 20120827
  Receipt Date: 20151019
  Transmission Date: 20160305
  Serious: Yes (Hospitalization)
  Sender: FDA-Public Use
  Company Number: US-JNJFOC-20120811164

PATIENT
  Age: 14 Year
  Sex: Male
  Weight: 59.4 kg

DRUGS (33)
  1. IVIG [Concomitant]
     Active Substance: HUMAN IMMUNOGLOBULIN G
     Dates: start: 20080808
  2. COENZYME Q10 [Concomitant]
     Active Substance: UBIDECARENONE
  3. 5-ASA [Concomitant]
     Active Substance: MESALAMINE
  4. CREATINE [Concomitant]
     Active Substance: CREATINE
  5. LEVOCARNITINE. [Concomitant]
     Active Substance: LEVOCARNITINE
  6. ONDANSETRON [Concomitant]
     Active Substance: ONDANSETRON
  7. VITAMIN C [Concomitant]
     Active Substance: ASCORBIC ACID
  8. REMICADE [Suspect]
     Active Substance: INFLIXIMAB
     Indication: CROHN^S DISEASE
     Route: 042
     Dates: start: 20080310
  9. ATENOLOL. [Concomitant]
     Active Substance: ATENOLOL
  10. MULTIVIT [Concomitant]
     Active Substance: VITAMINS
  11. MODAFINIL. [Concomitant]
     Active Substance: MODAFINIL
  12. TUMS [Concomitant]
     Active Substance: CALCIUM CARBONATE
  13. FLUDROCORTISONE [Concomitant]
     Active Substance: FLUDROCORTISONE
  14. FOLIC ACID. [Concomitant]
     Active Substance: FOLIC ACID
  15. GLYCOLAX [Concomitant]
     Active Substance: POLYETHYLENE GLYCOL 3350
  16. PULMICORT TURBUHALER [Concomitant]
     Active Substance: BUDESONIDE
  17. NEXIUM [Concomitant]
     Active Substance: ESOMEPRAZOLE MAGNESIUM
  18. VITAMIN D [Concomitant]
     Active Substance: CHOLECALCIFEROL
  19. XOPENEX [Concomitant]
     Active Substance: LEVALBUTEROL HYDROCHLORIDE
  20. MIDODRINE [Concomitant]
     Active Substance: MIDODRINE
  21. ACETAMINOPHEN. [Concomitant]
     Active Substance: ACETAMINOPHEN
     Indication: PREMEDICATION
  22. REMICADE [Suspect]
     Active Substance: INFLIXIMAB
     Indication: CROHN^S DISEASE
     Route: 042
     Dates: start: 20080508
  23. VITAMIN E\VITAMINS [Concomitant]
     Active Substance: .ALPHA.-TOCOPHEROL\VITAMINS
  24. BENADRYL [Concomitant]
     Active Substance: DIPHENHYDRAMINE HYDROCHLORIDE
     Indication: PREMEDICATION
  25. RIBOFLAVIN [Concomitant]
     Active Substance: RIBOFLAVIN
  26. SELENIUM [Concomitant]
     Active Substance: SELENIUM
  27. REMICADE [Suspect]
     Active Substance: INFLIXIMAB
     Indication: CROHN^S DISEASE
     Route: 042
     Dates: start: 20080111
  28. ALPHA LIPOIC ACID [Concomitant]
     Active Substance: .ALPHA.-LIPOIC ACID
  29. MAGNESIUM CITRATE. [Concomitant]
     Active Substance: MAGNESIUM CITRATE
  30. NALTREXONE [Concomitant]
     Active Substance: NALTREXONE
  31. MIRALAX [Concomitant]
     Active Substance: POLYETHYLENE GLYCOL 3350
  32. REMICADE [Suspect]
     Active Substance: INFLIXIMAB
     Indication: CROHN^S DISEASE
     Route: 042
     Dates: start: 20050807, end: 20120507
  33. GABAPENTIN. [Concomitant]
     Active Substance: GABAPENTIN

REACTIONS (2)
  - Incision site abscess [Recovered/Resolved]
  - Infection [Recovered/Resolved]

NARRATIVE: CASE EVENT DATE: 20120816
